FAERS Safety Report 13186868 (Version 2)
Quarter: 2017Q1

REPORT INFORMATION
  Report Type: Spontaneous
  Country: US (occurrence: US)
  Receive Date: 20170206
  Receipt Date: 20170314
  Transmission Date: 20170428
  Serious: No
  Sender: FDA-Public Use
  Company Number: US-ASTRAZENECA-2017SE10846

PATIENT
  Age: 724 Month
  Sex: Female
  Weight: 117.9 kg

DRUGS (4)
  1. WARFIN [Concomitant]
     Active Substance: WARFARIN
     Indication: ANTICOAGULANT THERAPY
     Route: 048
  2. WARFIN [Concomitant]
     Active Substance: WARFARIN
     Indication: ANTICOAGULANT THERAPY
     Route: 048
  3. ACTOS [Concomitant]
     Active Substance: PIOGLITAZONE HYDROCHLORIDE
     Indication: BLOOD GLUCOSE ABNORMAL
     Route: 048
  4. BYDUREON [Suspect]
     Active Substance: EXENATIDE
     Indication: TYPE 2 DIABETES MELLITUS
     Route: 058

REACTIONS (6)
  - Wrong technique in product usage process [Recovered/Resolved]
  - Injection site discolouration [Recovered/Resolved]
  - Device difficult to use [Unknown]
  - Injection site bruising [Unknown]
  - Blood glucose fluctuation [Recovered/Resolved]
  - Underdose [Recovered/Resolved]

NARRATIVE: CASE EVENT DATE: 201701
